FAERS Safety Report 15539278 (Version 8)
Quarter: 2019Q4

REPORT INFORMATION
  Report Type: Report from Study
  Country: CA (occurrence: CA)
  Receive Date: 20181022
  Receipt Date: 20191127
  Transmission Date: 20200122
  Serious: Yes (Other)
  Sender: FDA-Public Use
  Company Number: CA-BIOGEN-2018BI00648197

PATIENT
  Age: 54 Year
  Sex: Female

DRUGS (3)
  1. SATIVA SPRAY [Concomitant]
     Indication: PRODUCT USED FOR UNKNOWN INDICATION
     Dosage: 4.5 SPRAYS
     Route: 050
  2. TYSABRI [Suspect]
     Active Substance: NATALIZUMAB
     Indication: MULTIPLE SCLEROSIS
     Dosage: INFUSED FOR OVER 1 HR
     Route: 050
     Dates: start: 20110417, end: 20191002
  3. TYSABRI [Suspect]
     Active Substance: NATALIZUMAB
     Dosage: INFUSED FOR OVER 1 HR
     Route: 050
     Dates: start: 20110418

REACTIONS (2)
  - Procedural headache [Not Recovered/Not Resolved]
  - Meningioma [Unknown]

NARRATIVE: CASE EVENT DATE: 20191121
